FAERS Safety Report 4591611-1 (Version None)
Quarter: 2005Q1

REPORT INFORMATION
  Report Type: 
  Country: None (occurrence: None)
  Receive Date: 20050225
  Receipt Date: 20040706
  Transmission Date: 20050727
  Serious: Yes (Other)
  Sender: FDA-Public Use
  Company Number: PHNU2004DE02422

PATIENT
  Sex: Male

DRUGS (1)
  1. BRISERIN-N [Suspect]
     Dates: start: 19890101

REACTIONS (5)
  - BLOOD CALCIUM INCREASED [None]
  - BLOOD PARATHYROID HORMONE INCREASED [None]
  - CHOLELITHIASIS [None]
  - HYPERPARATHYROIDISM PRIMARY [None]
  - NEPHROLITHIASIS [None]
